FAERS Safety Report 4751931-4 (Version None)
Quarter: 2005Q3

REPORT INFORMATION
  Report Type: 
  Country: None (occurrence: None)
  Receive Date: 20050824
  Receipt Date: 20050718
  Transmission Date: 20060218
  Serious: Yes (Hospitalization, Other)
  Sender: FDA-Public Use
  Company Number: US-MERCK-0507USA02784

PATIENT
  Age: 63 Year
  Sex: Male
  Weight: 90 kg

DRUGS (5)
  1. VIOXX [Suspect]
     Indication: ARTHRITIS
     Route: 048
     Dates: end: 20020901
  2. DILANTIN [Concomitant]
     Route: 065
  3. PHENOBARBITAL [Concomitant]
     Route: 065
  4. DIOVAN [Concomitant]
     Route: 065
  5. GABAPENTIN [Concomitant]
     Route: 065

REACTIONS (3)
  - ADVERSE EVENT [None]
  - CARDIAC DISORDER [None]
  - MYOCARDIAL INFARCTION [None]
